FAERS Safety Report 7917604-1 (Version None)
Quarter: 2011Q4

REPORT INFORMATION
  Report Type: 
  Country: None (occurrence: None)
  Receive Date: 20111031
  Receipt Date: 20111018
  Transmission Date: 20120403
  Serious: Yes (Hospitalization)
  Sender: FDA-Public Use
  Company Number: THYM-1001096

PATIENT
  Age: 64 Year
  Sex: Female
  Weight: 55 kg

DRUGS (13)
  1. ACYCLOVIR [Concomitant]
  2. PLATELETS, CONCENTRATED [Concomitant]
  3. SENNOSIDE (SENNOSIDE A+B CALCIUM) [Concomitant]
  4. MAGNESIUM OXIDE [Concomitant]
  5. METHYLPREDNISOLONE SODIUM SUCCINATE [Concomitant]
  6. LANSOPRAZOLE [Concomitant]
  7. FLUCONAZOLE [Concomitant]
  8. CYCLOSPORINE [Concomitant]
  9. CALCIUM POLYSTYRENE SULFONATE [Concomitant]
  10. THYMOGLOBULIN [Suspect]
     Indication: APLASTIC ANAEMIA
     Dosage: 200 MG QD, INTRAVENOUS
     Route: 042
     Dates: start: 20090706, end: 20090707
  11. RED BLOOD CELLS, LEUCOCYTE DEPLETED [Concomitant]
  12. SULFAMETHOPRIM (SULFAMETHOXAZOLE, TRIMETHOPRIM) [Concomitant]
  13. LEVOFLOXACIN [Concomitant]

REACTIONS (6)
  - PLATELET COUNT DECREASED [None]
  - HAEMOGLOBIN DECREASED [None]
  - CHILLS [None]
  - LYMPHOCYTE COUNT DECREASED [None]
  - PYREXIA [None]
  - MALLORY-WEISS SYNDROME [None]
